FAERS Safety Report 9989426 (Version 1)
Quarter: 2014Q1

REPORT INFORMATION
  Report Type: Spontaneous
  Country: US (occurrence: None)
  Receive Date: 20140123
  Receipt Date: 20140123
  Transmission Date: 20141002
  Serious: Yes (Hospitalization)
  Sender: FDA-Public Use
  Company Number: UTC-039393

PATIENT
  Age: 65 Year
  Sex: Female
  Weight: 179.3 kg

DRUGS (2)
  1. REMODULIN [Suspect]
     Indication: PULMONARY ARTERIAL HYPERTENSION
     Dosage: 10.8 UG/KG (0.0075 UG/KG, 1 IN 1 MIN), SUBCUTANEOUS
     Route: 058
     Dates: start: 20091021
  2. REVATIO (SILDENAFIL CITRATE) (UNKNOWN) [Concomitant]

REACTIONS (2)
  - Dyspnoea [None]
  - Infusion site reaction [None]
